FAERS Safety Report 12138940 (Version 1)
Quarter: 2016Q1

REPORT INFORMATION
  Report Type: Spontaneous
  Country: US (occurrence: US)
  Receive Date: 20160302
  Receipt Date: 20160302
  Transmission Date: 20160526
  Serious: Yes (Other)
  Sender: FDA-Public Use
  Company Number: US-TEVA-638700USA

PATIENT
  Age: 17 Year
  Sex: Male
  Weight: 60.84 kg

DRUGS (1)
  1. CLARAVIS [Suspect]
     Active Substance: ISOTRETINOIN
     Indication: ACNE
     Dates: start: 201511, end: 20160204

REACTIONS (13)
  - Rectal haemorrhage [Unknown]
  - Headache [Unknown]
  - Weight decreased [Unknown]
  - Blood cholesterol increased [Unknown]
  - Groin abscess [Unknown]
  - White blood cell count decreased [Unknown]
  - Diplopia [Unknown]
  - Product substitution issue [Unknown]
  - Vision blurred [Unknown]
  - Depressed mood [Unknown]
  - Anxiety [Unknown]
  - Irritable bowel syndrome [Unknown]
  - Penile abscess [Unknown]

NARRATIVE: CASE EVENT DATE: 201602
